FAERS Safety Report 7016555-7 (Version None)
Quarter: 2010Q3

REPORT INFORMATION
  Report Type: 
  Country: None (occurrence: None)
  Receive Date: 20100927
  Receipt Date: 20100920
  Transmission Date: 20110219
  Serious: Yes (Hospitalization)
  Sender: FDA-Public Use
  Company Number: A0882081A

PATIENT
  Age: 74 Year
  Sex: Male

DRUGS (17)
  1. LOVAZA [Suspect]
     Dosage: 1G TWICE PER DAY
     Route: 048
     Dates: start: 20091101, end: 20100908
  2. LIPITOR [Concomitant]
  3. AVODART [Concomitant]
  4. RITALIN [Concomitant]
  5. CITRUCEL [Concomitant]
  6. AMBIEN [Concomitant]
  7. CO Q10 [Concomitant]
  8. KLONOPIN [Concomitant]
  9. NIACIN [Concomitant]
  10. GINKGO BILOBA [Concomitant]
  11. GINSENG [Concomitant]
  12. PRAVASTATIN [Concomitant]
  13. ALPHAGAN [Concomitant]
  14. ALEVE (CAPLET) [Concomitant]
  15. VITAMIN D [Concomitant]
  16. ASCORBIC ACID [Concomitant]
  17. VITAMIN B-12 [Concomitant]

REACTIONS (3)
  - CHEST PAIN [None]
  - ENZYME ABNORMALITY [None]
  - PANCREATITIS [None]
